FAERS Safety Report 8816000 (Version 1)
Quarter: 2012Q4

REPORT INFORMATION
  Report Type: 
  Country: US (occurrence: US)
  Receive Date: 20120928
  Receipt Date: 20120928
  Transmission Date: 20130627
  Serious: No
  Sender: FDA-Public Use
  Company Number: US-VIIV HEALTHCARE LIMITED-A0974797A

PATIENT

DRUGS (1)
  1. EPZICOM [Suspect]
     Indication: HIV INFECTION
     Route: 048

REACTIONS (2)
  - Nausea [Unknown]
  - Lipodystrophy acquired [Unknown]
